FAERS Safety Report 9470842 (Version 1)
Quarter: 2013Q3

REPORT INFORMATION
  Report Type: Spontaneous
  Country: US (occurrence: None)
  Receive Date: 20130820
  Receipt Date: 20130820
  Transmission Date: 20140515
  Serious: No
  Sender: FDA-Public Use
  Company Number: None

PATIENT
  Age: 60 Year
  Sex: Female
  Weight: 78.93 kg

DRUGS (10)
  1. CLOBETASOL PROPIONATE CREAM USP 0.05% [Suspect]
     Indication: RASH
     Dosage: APPLY OVER ENTIRED INFECTED AREA
     Route: 061
     Dates: start: 20130806, end: 20130807
  2. CLOBETASOL PROPIONATE CREAM USP 0.05% [Suspect]
     Indication: PRURITUS
     Dosage: APPLY OVER ENTIRED INFECTED AREA
     Route: 061
     Dates: start: 20130806, end: 20130807
  3. MELOXICAM [Concomitant]
  4. SPIRIVIA [Concomitant]
  5. ADVAIR [Concomitant]
  6. VENTOLIN [Concomitant]
  7. HYDROCODONE [Concomitant]
  8. STOOL SOFTENER [Concomitant]
  9. CLARITIN [Concomitant]
  10. JANUMET [Concomitant]

REACTIONS (3)
  - Burning sensation [None]
  - Pruritus [None]
  - Erythema [None]
